FAERS Safety Report 6498063-5 (Version None)
Quarter: 2009Q4

REPORT INFORMATION
  Report Type: 
  Country: None (occurrence: None)
  Receive Date: 20091215
  Receipt Date: 20091208
  Transmission Date: 20100525
  Serious: Yes (Death)
  Sender: FDA-Public Use
  Company Number: US-ABBOTT-09P-163-0609307-00

PATIENT
  Sex: Female
  Weight: 44.038 kg

DRUGS (1)
  1. HUMIRA [Suspect]
     Indication: CROHN'S DISEASE
     Dates: start: 20070101, end: 20090318

REACTIONS (2)
  - ABDOMINAL INFECTION [None]
  - ABDOMINAL PAIN [None]
